FAERS Safety Report 6850519-9 (Version None)
Quarter: 2010Q3

REPORT INFORMATION
  Report Type: 
  Country: None (occurrence: None)
  Receive Date: 20100716
  Receipt Date: 20080626
  Transmission Date: 20110219
  Serious: No
  Sender: FDA-Public Use
  Company Number: US-PFIZER INC-2007086873

PATIENT
  Age: 58 Year
  Sex: Female
  Weight: 47.6 kg

DRUGS (2)
  1. CHANTIX [Suspect]
     Indication: SMOKING CESSATION THERAPY
     Route: 048
     Dates: start: 20071006, end: 20071014
  2. PAXIL [Concomitant]
     Route: 048

REACTIONS (2)
  - DYSGEUSIA [None]
  - VOMITING [None]
